FAERS Safety Report 8947351 (Version 1)
Quarter: 2012Q4

REPORT INFORMATION
  Report Type: Report from Study
  Country: CA (occurrence: CA)
  Receive Date: 20121205
  Receipt Date: 20121205
  Transmission Date: 20130627
  Serious: Yes (Other)
  Sender: FDA-Public Use
  Company Number: CA-JNJFOC-20121113968

PATIENT
  Sex: Female
  Weight: 62.4 kg

DRUGS (15)
  1. REMICADE [Suspect]
     Indication: COLITIS ULCERATIVE
     Route: 042
     Dates: start: 20120615
  2. REMICADE [Suspect]
     Indication: COLITIS ULCERATIVE
     Route: 042
     Dates: start: 20120925
  3. ASACOL [Concomitant]
     Route: 065
  4. LOSEC [Concomitant]
     Route: 065
  5. ATENOLOL [Concomitant]
     Route: 065
  6. RAMIPRIL [Concomitant]
     Route: 065
  7. FUROSEMIDE [Concomitant]
     Route: 065
  8. POTASSIUM [Concomitant]
     Route: 065
  9. METHYLDOPA [Concomitant]
     Route: 065
  10. PREDNISONE [Concomitant]
     Route: 048
  11. ZOPICLONE [Concomitant]
     Route: 065
  12. CALCIUM [Concomitant]
     Route: 065
  13. VITAMIN D [Concomitant]
     Route: 065
  14. SALBUTAMOL [Concomitant]
     Route: 065
  15. BECLOMETHASONE [Concomitant]
     Route: 065

REACTIONS (3)
  - Dyspnoea [Not Recovered/Not Resolved]
  - Arrhythmia [Unknown]
  - Back pain [Not Recovered/Not Resolved]
